FAERS Safety Report 21785938 (Version 4)
Quarter: 2023Q2

REPORT INFORMATION
  Report Type: Report from Study
  Country: US (occurrence: US)
  Receive Date: 20221228
  Receipt Date: 20230414
  Transmission Date: 20230722
  Serious: No
  Sender: FDA-Public Use
  Company Number: US-ABBVIE-4250844

PATIENT
  Sex: Female

DRUGS (10)
  1. VENCLEXTA [Suspect]
     Active Substance: VENETOCLAX
     Indication: Acute myelomonocytic leukaemia
     Dosage: TAKE 1 TABLET BY MOUTH DAILY FOR 24 DOSES TAKE ON DAYS 5 TO 28?2022-12 WAS THE ONSET OFF LABEL US...
     Route: 048
     Dates: start: 20221214
  2. COMPAZINE [Concomitant]
     Active Substance: PROCHLORPERAZINE MALEATE
     Indication: Vomiting
     Dosage: STRENGTH- 10 MG
     Route: 048
     Dates: start: 20221215
  3. INQOVI [Concomitant]
     Active Substance: CEDAZURIDINE\DECITABINE
     Indication: Product used for unknown indication
     Dosage: 35-100MG TABLET?TAKE 1 TABLET FOR 5 DAYS
     Route: 048
     Dates: start: 20221013
  4. ATIVAN [Concomitant]
     Active Substance: LORAZEPAM
     Indication: Vomiting
     Dosage: FOR UP TO 30 DOSES IF INFECTIVE MAY REPEAT ONE AFTER 30 MINUTES?0.5 MG
     Route: 048
     Dates: start: 20221215
  5. CELEXA [Concomitant]
     Active Substance: CITALOPRAM HYDROBROMIDE
     Indication: Product used for unknown indication
     Dosage: STRENGTH- 20 MG
     Route: 048
  6. RETACRIT [Concomitant]
     Active Substance: EPOETIN ALFA-EPBX
     Indication: Product used for unknown indication
  7. KENALOG [Concomitant]
     Active Substance: TRIAMCINOLONE ACETONIDE
     Indication: Product used for unknown indication
     Dosage: STRENGTH- 0.1% CREAM?APPLY ONE APPLICATION TOPICALLY TO AFFECTED AREA ON THIGHS TWICE DAILY FOR 2...
     Route: 061
     Dates: start: 20220425
  8. ZOFRAN [Concomitant]
     Active Substance: ONDANSETRON HYDROCHLORIDE
     Indication: Vomiting
     Dosage: STRENGTH- 8 MG
     Route: 048
     Dates: start: 20221215
  9. Caltrate 600+ D plus minerals [Concomitant]
     Indication: Product used for unknown indication
     Route: 048
  10. CALCIUM\CHOLECALCIFEROL\COPPER\MAGNESIUM\MANGANESE\ZINC [Concomitant]
     Active Substance: CALCIUM\CHOLECALCIFEROL\COPPER\MAGNESIUM\MANGANESE\ZINC
     Indication: Product used for unknown indication
     Dosage: CALTRATE 600+ D PLUS MINERALS
     Route: 048

REACTIONS (2)
  - Malaise [Unknown]
  - Off label use [Unknown]
